FAERS Safety Report 4390866-6 (Version None)
Quarter: 2004Q3

REPORT INFORMATION
  Report Type: 
  Country: None (occurrence: None)
  Receive Date: 20040702
  Receipt Date: 20040702
  Transmission Date: 20050211
  Serious: Yes (Hospitalization)
  Sender: FDA-Public Use
  Company Number: None

PATIENT
  Age: 14 Year
  Sex: Male
  Weight: 59.1 kg

DRUGS (8)
  1. METHOTREXATE [Suspect]
     Indication: NON-HODGKIN'S LYMPHOMA
     Dosage: 12 MG ONE DOSE INTRATHECAL
     Route: 037
     Dates: start: 20040614, end: 20040614
  2. L ASPARAGINASE [Suspect]
     Dosage: 104000 UNITS ONE DOSE IM
     Route: 030
     Dates: start: 20040618, end: 20040618
  3. SEPTRA [Concomitant]
  4. OMEPRAZOLE [Concomitant]
  5. SENNA [Concomitant]
  6. ONDANSETRON [Concomitant]
  7. MAALOX [Concomitant]
  8. PREDNISONE [Concomitant]

REACTIONS (1)
  - CAECITIS [None]
